FAERS Safety Report 12471671 (Version 1)
Quarter: 2016Q2

REPORT INFORMATION
  Report Type: Spontaneous
  Country: ES (occurrence: ES)
  Receive Date: 20160616
  Receipt Date: 20160616
  Transmission Date: 20160815
  Serious: Yes (Other)
  Sender: FDA-Public Use
  Company Number: ES-PFIZER INC-2016292294

PATIENT
  Age: 5 Year
  Sex: Male

DRUGS (1)
  1. FARMIBLASTINA [Suspect]
     Active Substance: DOXORUBICIN HYDROCHLORIDE
     Route: 064

REACTIONS (5)
  - Psychomotor hyperactivity [Unknown]
  - Attention deficit/hyperactivity disorder [Unknown]
  - Autism [Unknown]
  - Mental disorder [Unknown]
  - Maternal exposure during pregnancy [Unknown]
